FAERS Safety Report 25720136 (Version 1)
Quarter: 2025Q3

REPORT INFORMATION
  Report Type: Spontaneous
  Country: EU (occurrence: EU)
  Receive Date: 20250825
  Receipt Date: 20250825
  Transmission Date: 20251021
  Serious: Yes (Death, Other)
  Sender: CHEPLAPHARM
  Company Number: None

PATIENT
  Age: 22 Year
  Sex: Male

DRUGS (13)
  1. QUETIAPINE [Interacting]
     Active Substance: QUETIAPINE
     Indication: Completed suicide
  2. QUETIAPINE [Interacting]
     Active Substance: QUETIAPINE
     Indication: Major depression
  3. QUETIAPINE [Interacting]
     Active Substance: QUETIAPINE
     Indication: Panic disorder
  4. PAROXETINE [Interacting]
     Active Substance: PAROXETINE
     Indication: Panic disorder
     Route: 048
  5. PAROXETINE [Interacting]
     Active Substance: PAROXETINE
     Indication: Completed suicide
     Route: 048
  6. PAROXETINE [Interacting]
     Active Substance: PAROXETINE
     Indication: Major depression
     Route: 048
  7. PAROXETINE [Interacting]
     Active Substance: PAROXETINE
     Indication: Intentional overdose
     Route: 048
  8. CLOZAPINE [Interacting]
     Active Substance: CLOZAPINE
     Indication: Panic disorder
     Route: 048
  9. CLOZAPINE [Interacting]
     Active Substance: CLOZAPINE
     Indication: Completed suicide
     Route: 048
  10. CLOZAPINE [Interacting]
     Active Substance: CLOZAPINE
     Indication: Major depression
     Route: 048
  11. ALPRAZOLAM [Interacting]
     Active Substance: ALPRAZOLAM
     Indication: Completed suicide
  12. ALPRAZOLAM [Interacting]
     Active Substance: ALPRAZOLAM
     Indication: Panic disorder
  13. ALPRAZOLAM [Interacting]
     Active Substance: ALPRAZOLAM
     Indication: Major depression

REACTIONS (10)
  - Completed suicide [Fatal]
  - Toxicity to various agents [Fatal]
  - Potentiating drug interaction [Fatal]
  - Serotonin syndrome [Fatal]
  - Electrocardiogram QT prolonged [Fatal]
  - Ventricular arrhythmia [Fatal]
  - Brain oedema [Unknown]
  - Pulmonary congestion [Unknown]
  - Pulmonary oedema [Unknown]
  - Haemorrhage [Unknown]
